FAERS Safety Report 6970596-4 (Version None)
Quarter: 2010Q3

REPORT INFORMATION
  Report Type: 
  Country: None (occurrence: None)
  Receive Date: 20100908
  Receipt Date: 20100826
  Transmission Date: 20110219
  Serious: Yes (Other)
  Sender: FDA-Public Use
  Company Number: PHHY2010BR58992

PATIENT
  Age: 36 Year
  Sex: Male

DRUGS (2)
  1. GLEEVEC [Suspect]
     Indication: CHRONIC MYELOID LEUKAEMIA
     Dosage: 600 MG
     Route: 048
  2. CHEMOTHERAPEUTICS NOS [Concomitant]

REACTIONS (2)
  - DERMATITIS CONTACT [None]
  - TRANSPLANT [None]
